FAERS Safety Report 5173814-0 (Version None)
Quarter: 2006Q4

REPORT INFORMATION
  Report Type: 
  Country: None (occurrence: None)
  Receive Date: 20061214
  Receipt Date: 20061030
  Transmission Date: 20070319
  Serious: Yes (Hospitalization)
  Sender: FDA-Public Use
  Company Number: JP-JPN-A200604636

PATIENT
  Age: 64 Year
  Sex: Female

DRUGS (4)
  1. PAXIL [Suspect]
     Indication: DEPRESSION
     Dosage: 40MG PER DAY
     Route: 048
     Dates: start: 20060401, end: 20061028
  2. ANAFRANIL [Suspect]
     Indication: DEPRESSION
     Dosage: 150MG PER DAY
     Route: 048
     Dates: start: 20060829, end: 20061026
  3. UNKNOWN DRUG [Suspect]
     Indication: DEPRESSION
     Dosage: 2.5G THREE TIMES PER DAY
     Route: 048
     Dates: start: 20061010, end: 20061028
  4. RISPERDAL [Concomitant]
     Indication: BIPOLAR DISORDER
     Dosage: .5MG PER DAY
     Route: 048

REACTIONS (9)
  - BLOOD TEST ABNORMAL [None]
  - CIRCULATORY COLLAPSE [None]
  - DRUG WITHDRAWAL SYNDROME [None]
  - INCOHERENT [None]
  - MANIA [None]
  - PSEUDODEMENTIA [None]
  - RESTLESSNESS [None]
  - STUPOR [None]
  - SUICIDAL IDEATION [None]
